FAERS Safety Report 7285277-X (Version None)
Quarter: 2011Q1

REPORT INFORMATION
  Report Type: 
  Country: None (occurrence: None)
  Receive Date: 20110210
  Receipt Date: 20110127
  Transmission Date: 20110831
  Serious: Yes (Hospitalization, Other)
  Sender: FDA-Public Use
  Company Number: US-SANOFI-AVENTIS-2011SA006052

PATIENT
  Age: 81 Year
  Sex: Male

DRUGS (4)
  1. DABIGATRAN ETEXILATE [Interacting]
     Route: 065
  2. MULTAQ [Suspect]
     Indication: ATRIAL FIBRILLATION
     Route: 048
     Dates: start: 20110101
  3. LASIX [Concomitant]
  4. ALDACTONE [Concomitant]
     Dosage: LOW DOSE

REACTIONS (12)
  - DRUG INTERACTION [None]
  - URINARY RETENTION [None]
  - ACTIVATED PARTIAL THROMBOPLASTIN TIME PROLONGED [None]
  - RENAL FAILURE ACUTE [None]
  - URINE OUTPUT DECREASED [None]
  - HYPERKALAEMIA [None]
  - PROTHROMBIN TIME PROLONGED [None]
  - CREATININE RENAL CLEARANCE DECREASED [None]
  - BLOOD UREA INCREASED [None]
  - DYSPNOEA [None]
  - HAEMORRHAGE [None]
  - ACIDOSIS [None]
